FAERS Safety Report 5340617-3 (Version None)
Quarter: 2007Q2

REPORT INFORMATION
  Report Type: 
  Country: None (occurrence: None)
  Receive Date: 20070405
  Receipt Date: 20070110
  Transmission Date: 20071010
  Serious: No
  Sender: FDA-Public Use
  Company Number: US200701002094

PATIENT
  Age: 27 Year
  Sex: Male

DRUGS (4)
  1. CYMBALTA [Suspect]
     Indication: ANXIETY
     Dosage: 30 MG, DAILY (1/D), ORAL
     Route: 048
     Dates: start: 20070104
  2. NEXIUM [Concomitant]
  3. CLARITIN-D [Concomitant]
  4. ANTIBIOTICS [Concomitant]

REACTIONS (2)
  - ARTHRALGIA [None]
  - JOINT STIFFNESS [None]
